FAERS Safety Report 8255372 (Version 8)
Quarter: 2013Q3

REPORT INFORMATION
  Report Type: Report from Study
  Country: BR (occurrence: BR)
  Receive Date: 20111118
  Receipt Date: 20130812
  Transmission Date: 20140515
  Serious: Yes (Other)
  Sender: FDA-Public Use
  Company Number: PHHY2011BR098758

PATIENT
  Sex: Female
  Weight: 67 kg

DRUGS (13)
  1. SANDOSTATIN LAR [Suspect]
     Indication: ACROMEGALY
     Dosage: 1 DF, APPLICATION EVERY 2 MONTHS
     Dates: start: 2006
  2. SANDOSTATIN LAR [Suspect]
     Dosage: 1 DF, 1 APPLICATION A MONTH
     Dates: start: 201011, end: 201102
  3. SANDOSTATIN LAR [Suspect]
     Dosage: 1 DF, 1 APPLICATION A MONTH
     Dates: start: 20111221
  4. SANDOSTATIN LAR [Suspect]
     Dosage: 1 DF, EVERY 28 DAYS
     Route: 030
     Dates: start: 2011
  5. DIURETICS [Suspect]
     Indication: BLOOD PRESSURE
     Dosage: UNK UKN, UNK
  6. PURAN T4 [Concomitant]
     Indication: HYPOTHYROIDISM
     Dosage: 150 UG, DAILY FROM MONDAY UNTIL SATURDAY)
     Route: 048
     Dates: start: 2005
  7. PURAN T4 [Concomitant]
     Dosage: 175 UG, DAILY (ON SUNDAY)
     Route: 048
  8. PURAN T4 [Concomitant]
     Dosage: 165 MCG, UNK
     Route: 048
  9. PURAN T4 [Concomitant]
     Dosage: 150 UG, PER DAY (FROM MONDAY UNTIL SATURDAY)
     Route: 048
     Dates: start: 2007
  10. PURAN T4 [Concomitant]
     Dosage: 175 UG, PER DAY (ON SUNDAY)
     Route: 048
  11. HYDROCHLOROTHIAZIDE [Concomitant]
     Dosage: 25 MG, UNK
     Dates: start: 2006
  12. CAPTOPRIL [Concomitant]
     Indication: BLOOD PRESSURE INCREASED
     Dosage: 25 MG, PER DAY
     Route: 048
  13. FUROSEMIDE [Concomitant]
     Indication: DIURETIC THERAPY
     Dosage: 1 DF, PER DAY
     Route: 048
     Dates: start: 2007

REACTIONS (29)
  - Thyroid cancer [Unknown]
  - Metastases to lung [Unknown]
  - Metastasis [Unknown]
  - Pituitary tumour [Unknown]
  - Neoplasm recurrence [Unknown]
  - Insulin-like growth factor increased [Unknown]
  - Memory impairment [Unknown]
  - Oedema peripheral [Not Recovered/Not Resolved]
  - Eye swelling [Not Recovered/Not Resolved]
  - Swelling face [Not Recovered/Not Resolved]
  - Arthralgia [Unknown]
  - Swollen tongue [Not Recovered/Not Resolved]
  - Weight increased [Recovering/Resolving]
  - Visual impairment [Unknown]
  - Micturition disorder [Unknown]
  - Pain [Unknown]
  - Weight decreased [Unknown]
  - Pain in extremity [Unknown]
  - Lip disorder [Unknown]
  - Bone density increased [Unknown]
  - Foot deformity [Unknown]
  - Hand deformity [Unknown]
  - Asthenopia [Unknown]
  - Tongue discolouration [Unknown]
  - Tongue disorder [Unknown]
  - Hypothyroidism [Unknown]
  - Injection site pain [Unknown]
  - Blood growth hormone increased [Unknown]
  - Vomiting [Unknown]
